FAERS Safety Report 26092869 (Version 1)
Quarter: 2025Q4

REPORT INFORMATION
  Report Type: Spontaneous
  Country: GB (occurrence: GB)
  Receive Date: 20251126
  Receipt Date: 20251126
  Transmission Date: 20260117
  Serious: Yes (Other)
  Sender: MYLAN
  Company Number: None

PATIENT
  Age: 43 Year
  Sex: Female
  Weight: 102 kg

DRUGS (24)
  1. CANDESARTAN [Suspect]
     Active Substance: CANDESARTAN
     Indication: Ill-defined disorder
     Dosage: 2 MILLIGRAM, QD
     Dates: start: 20251023, end: 20251120
  2. CANDESARTAN [Suspect]
     Active Substance: CANDESARTAN
     Dosage: 2 MILLIGRAM, QD
     Route: 048
     Dates: start: 20251023, end: 20251120
  3. CANDESARTAN [Suspect]
     Active Substance: CANDESARTAN
     Dosage: 2 MILLIGRAM, QD
     Route: 048
     Dates: start: 20251023, end: 20251120
  4. CANDESARTAN [Suspect]
     Active Substance: CANDESARTAN
     Dosage: 2 MILLIGRAM, QD
     Dates: start: 20251023, end: 20251120
  5. BENZOYL PEROXIDE [Concomitant]
     Active Substance: BENZOYL PEROXIDE
     Indication: Ill-defined disorder
     Dosage: UNK UNK, PM (APPLY THINLY ONCE DAILY IN THE EVENING)
     Dates: start: 20250902, end: 20250930
  6. BENZOYL PEROXIDE [Concomitant]
     Active Substance: BENZOYL PEROXIDE
     Dosage: UNK UNK, PM (APPLY THINLY ONCE DAILY IN THE EVENING)
     Route: 065
     Dates: start: 20250902, end: 20250930
  7. BENZOYL PEROXIDE [Concomitant]
     Active Substance: BENZOYL PEROXIDE
     Dosage: UNK UNK, PM (APPLY THINLY ONCE DAILY IN THE EVENING)
     Route: 065
     Dates: start: 20250902, end: 20250930
  8. BENZOYL PEROXIDE [Concomitant]
     Active Substance: BENZOYL PEROXIDE
     Dosage: UNK UNK, PM (APPLY THINLY ONCE DAILY IN THE EVENING)
     Dates: start: 20250902, end: 20250930
  9. SUMATRIPTAN [Concomitant]
     Active Substance: SUMATRIPTAN
     Indication: Ill-defined disorder
     Dosage: UNK (ONE TABLET AT START OF MIGRAINE, IF HEADACHE GOES AND THEN RECURS YOU MAY TAKE A SECOND TABLET AFTER TWO HOURS.  DO NOT TAKE MORE THAN 300MG IN 24 HOURS)
  10. SUMATRIPTAN [Concomitant]
     Active Substance: SUMATRIPTAN
     Dosage: UNK (ONE TABLET AT START OF MIGRAINE, IF HEADACHE GOES AND THEN RECURS YOU MAY TAKE A SECOND TABLET AFTER TWO HOURS.  DO NOT TAKE MORE THAN 300MG IN 24 HOURS)
     Route: 065
  11. SUMATRIPTAN [Concomitant]
     Active Substance: SUMATRIPTAN
     Dosage: UNK (ONE TABLET AT START OF MIGRAINE, IF HEADACHE GOES AND THEN RECURS YOU MAY TAKE A SECOND TABLET AFTER TWO HOURS.  DO NOT TAKE MORE THAN 300MG IN 24 HOURS)
     Route: 065
  12. SUMATRIPTAN [Concomitant]
     Active Substance: SUMATRIPTAN
     Dosage: UNK (ONE TABLET AT START OF MIGRAINE, IF HEADACHE GOES AND THEN RECURS YOU MAY TAKE A SECOND TABLET AFTER TWO HOURS.  DO NOT TAKE MORE THAN 300MG IN 24 HOURS)
  13. PROPRANOLOL [Concomitant]
     Active Substance: PROPRANOLOL HYDROCHLORIDE
     Indication: Ill-defined disorder
     Dosage: 1 DOSAGE FORM, TID (AKE ONE 3 TIMES/DAY)
     Dates: start: 20251120
  14. PROPRANOLOL [Concomitant]
     Active Substance: PROPRANOLOL HYDROCHLORIDE
     Dosage: 1 DOSAGE FORM, TID (AKE ONE 3 TIMES/DAY)
     Route: 065
     Dates: start: 20251120
  15. PROPRANOLOL [Concomitant]
     Active Substance: PROPRANOLOL HYDROCHLORIDE
     Dosage: 1 DOSAGE FORM, TID (AKE ONE 3 TIMES/DAY)
     Route: 065
     Dates: start: 20251120
  16. PROPRANOLOL [Concomitant]
     Active Substance: PROPRANOLOL HYDROCHLORIDE
     Dosage: 1 DOSAGE FORM, TID (AKE ONE 3 TIMES/DAY)
     Dates: start: 20251120
  17. LANSOPRAZOLE [Concomitant]
     Active Substance: LANSOPRAZOLE
     Indication: Ill-defined disorder
     Dosage: 1 DOSAGE FORM, QD (TAKE ONE ONCE DAILY)
     Dates: start: 20240610
  18. LANSOPRAZOLE [Concomitant]
     Active Substance: LANSOPRAZOLE
     Dosage: 1 DOSAGE FORM, QD (TAKE ONE ONCE DAILY)
     Route: 065
     Dates: start: 20240610
  19. LANSOPRAZOLE [Concomitant]
     Active Substance: LANSOPRAZOLE
     Dosage: 1 DOSAGE FORM, QD (TAKE ONE ONCE DAILY)
     Route: 065
     Dates: start: 20240610
  20. LANSOPRAZOLE [Concomitant]
     Active Substance: LANSOPRAZOLE
     Dosage: 1 DOSAGE FORM, QD (TAKE ONE ONCE DAILY)
     Dates: start: 20240610
  21. VENLAFAXINE [Concomitant]
     Active Substance: VENLAFAXINE HYDROCHLORIDE
     Indication: Ill-defined disorder
     Dosage: UNK (TAKE ONE DAILY - CAN INCREASE TO TWO DAILY IF T...)
  22. VENLAFAXINE [Concomitant]
     Active Substance: VENLAFAXINE HYDROCHLORIDE
     Dosage: UNK (TAKE ONE DAILY - CAN INCREASE TO TWO DAILY IF T...)
     Route: 065
  23. VENLAFAXINE [Concomitant]
     Active Substance: VENLAFAXINE HYDROCHLORIDE
     Dosage: UNK (TAKE ONE DAILY - CAN INCREASE TO TWO DAILY IF T...)
     Route: 065
  24. VENLAFAXINE [Concomitant]
     Active Substance: VENLAFAXINE HYDROCHLORIDE
     Dosage: UNK (TAKE ONE DAILY - CAN INCREASE TO TWO DAILY IF T...)

REACTIONS (2)
  - Chest discomfort [Unknown]
  - Dyspnoea [Recovered/Resolved]

NARRATIVE: CASE EVENT DATE: 20251120
